FAERS Safety Report 8805666 (Version 1)
Quarter: 2012Q4

REPORT INFORMATION
  Report Type: Spontaneous
  Country: CA (occurrence: None)
  Receive Date: 20120917
  Receipt Date: 20120917
  Transmission Date: 20130627
  Serious: Yes (Other)
  Sender: FDA-Public Use
  Company Number: 2012220178

PATIENT
  Age: 86 Year
  Sex: Female

DRUGS (1)
  1. DALTEPARIN SODIUM (DALTEPARIN SODIUM) UNKNOWN [Suspect]
     Indication: THROMBOSIS PROPHYLAXIS

REACTIONS (1)
  - Myocardial infarction [None]
